FAERS Safety Report 15331437 (Version 2)
Quarter: 2018Q3

REPORT INFORMATION
  Report Type: Spontaneous
  Country: US (occurrence: US)
  Receive Date: 20180829
  Receipt Date: 20180914
  Transmission Date: 20181010
  Serious: Yes (Hospitalization, Other)
  Sender: FDA-Public Use
  Company Number: US-TEVA-2018-US-948468

PATIENT
  Age: 31 Year
  Sex: Female

DRUGS (5)
  1. PREDNISONE. [Suspect]
     Active Substance: PREDNISONE
     Indication: NEUROSARCOIDOSIS
     Dosage: 4 WEEK COURSE
     Route: 048
  2. METHYLPREDNISOLONE. [Suspect]
     Active Substance: METHYLPREDNISOLONE
     Indication: NEUROSARCOIDOSIS
     Dosage: FOR 5 DAYS
     Route: 042
  3. PREDNISONE. [Suspect]
     Active Substance: PREDNISONE
     Indication: PULMONARY SARCOIDOSIS
  4. METHYLPREDNISOLONE. [Suspect]
     Active Substance: METHYLPREDNISOLONE
     Indication: PULMONARY SARCOIDOSIS
  5. ETANERCEPT [Suspect]
     Active Substance: ETANERCEPT
     Indication: ANKYLOSING SPONDYLITIS
     Route: 065

REACTIONS (18)
  - Decreased appetite [Unknown]
  - Pulmonary sarcoidosis [Unknown]
  - Osteonecrosis [Unknown]
  - Ankle fracture [Unknown]
  - Photophobia [Recovering/Resolving]
  - Nuclear magnetic resonance imaging brain abnormal [Not Recovered/Not Resolved]
  - Insomnia [Unknown]
  - Coordination abnormal [Unknown]
  - Diplopia [Recovering/Resolving]
  - Neurosarcoidosis [Not Recovered/Not Resolved]
  - Hyperglycaemia [Unknown]
  - Anosmia [Not Recovered/Not Resolved]
  - Hypoaesthesia [Not Recovered/Not Resolved]
  - Nausea [Unknown]
  - Fall [Unknown]
  - Ageusia [Not Recovered/Not Resolved]
  - Arthropathy [Unknown]
  - Trigeminal nerve disorder [Not Recovered/Not Resolved]
